FAERS Safety Report 21500575 (Version 2)
Quarter: 2022Q4

REPORT INFORMATION
  Report Type: Spontaneous
  Country: US (occurrence: US)
  Receive Date: 20221025
  Receipt Date: 20221102
  Transmission Date: 20230113
  Serious: No
  Sender: FDA-Public Use
  Company Number: US-NOVARTISTESTPH-NVSC2022US239168

PATIENT
  Sex: Male

DRUGS (1)
  1. LEQVIO [Suspect]
     Active Substance: INCLISIRAN SODIUM
     Indication: Hypercholesterolaemia
     Dosage: 284 MG, (ONE SINGLE DOSE)
     Route: 058
     Dates: start: 202206

REACTIONS (4)
  - Oedema [Recovering/Resolving]
  - Urinary incontinence [Recovering/Resolving]
  - Pollakiuria [Recovering/Resolving]
  - Diarrhoea [Recovering/Resolving]
